FAERS Safety Report 18123806 (Version 1)
Quarter: 2020Q3

REPORT INFORMATION
  Report Type: Spontaneous
  Country: US (occurrence: US)
  Receive Date: 20200807
  Receipt Date: 20200807
  Transmission Date: 20201103
  Serious: Yes (Death)
  Sender: FDA-Public Use
  Company Number: US-PFIZER INC-2020300168

PATIENT
  Age: 78 Year
  Sex: Male

DRUGS (7)
  1. GLUCOSE [Concomitant]
     Active Substance: DEXTROSE
     Indication: HYPERKALAEMIA
  2. GLUCOSE [Concomitant]
     Active Substance: DEXTROSE
     Indication: HAEMODIALYSIS
  3. INSULIN [Concomitant]
     Active Substance: INSULIN NOS
     Indication: HYPERKALAEMIA
  4. HEPARIN SODIUM. [Suspect]
     Active Substance: HEPARIN SODIUM
     Dosage: 18 MG (PER HOUR BY INFUSION PUMP)
  5. INSULIN [Concomitant]
     Active Substance: INSULIN NOS
     Indication: ANURIA
     Dosage: UNK
  6. GLUCOSE [Concomitant]
     Active Substance: DEXTROSE
     Indication: ANURIA
     Dosage: UNK
  7. HEPARIN SODIUM. [Suspect]
     Active Substance: HEPARIN SODIUM
     Dosage: 30 MG

REACTIONS (4)
  - Brain oedema [Fatal]
  - Subdural haematoma [Fatal]
  - Condition aggravated [Fatal]
  - Brain herniation [Fatal]
